FAERS Safety Report 9604206 (Version 1)
Quarter: 2013Q4

REPORT INFORMATION
  Report Type: Spontaneous
  Country: US (occurrence: US)
  Receive Date: 20131008
  Receipt Date: 20131008
  Transmission Date: 20140711
  Serious: Yes (Hospitalization)
  Sender: FDA-Public Use
  Company Number: US-ASTRAZENECA-2013SE73019

PATIENT
  Age: 74 Year
  Sex: Male
  Weight: 64 kg

DRUGS (20)
  1. SYMBICORT [Suspect]
     Indication: CHRONIC OBSTRUCTIVE PULMONARY DISEASE
     Dosage: 320MCG BID
     Route: 055
  2. PRILOSEC [Suspect]
     Indication: GASTROOESOPHAGEAL REFLUX DISEASE
     Route: 048
  3. SEROQUEL [Suspect]
     Indication: BIPOLAR DISORDER
     Route: 048
     Dates: start: 2011
  4. COLACE [Concomitant]
     Indication: LAXATIVE SUPPORTIVE CARE
     Route: 048
  5. MULTIVITAMIN [Concomitant]
     Indication: VITAMIN SUPPLEMENTATION
     Dosage: DAILY
     Route: 048
  6. PROCARDIA [Concomitant]
     Indication: HYPERTENSION
     Route: 048
  7. IBUPROFEN [Concomitant]
     Indication: PAIN
     Route: 048
  8. MELOXICAN [Concomitant]
     Route: 048
  9. ZANAFLEX [Concomitant]
     Indication: MUSCLE SPASMS
     Route: 048
  10. ORAJEL [Concomitant]
     Indication: GINGIVAL DISORDER
     Dosage: PRN
     Route: 050
  11. TYLENOL [Concomitant]
     Indication: PAIN
     Route: 048
  12. MAGNESIUM [Concomitant]
     Indication: CONSTIPATION
     Dosage: PRN
     Route: 048
  13. MAALOX [Concomitant]
     Indication: GASTRIC DISORDER
     Route: 048
  14. ATIVAN [Concomitant]
     Indication: ANXIETY
     Route: 048
  15. ULTRAM [Concomitant]
     Indication: BACK PAIN
     Route: 048
  16. MIRILAX [Concomitant]
     Indication: CONSTIPATION
     Dosage: PRN
     Route: 048
  17. HYDROCODONE [Concomitant]
     Indication: BACK PAIN
     Dosage: 5/325MG PRN
     Route: 048
  18. THERMAL CARE PATCH [Concomitant]
     Indication: BACK PAIN
     Dosage: PRN
     Route: 061
  19. CHERATUSSIN [Concomitant]
     Indication: COUGH
     Dosage: PRN
     Route: 048
  20. PSEUDAFED [Concomitant]
     Indication: MULTIPLE ALLERGIES
     Dosage: PRN
     Route: 048

REACTIONS (6)
  - Pneumonia [Recovered/Resolved]
  - Back pain [Not Recovered/Not Resolved]
  - Dyspnoea exertional [Not Recovered/Not Resolved]
  - Prostatomegaly [Not Recovered/Not Resolved]
  - Headache [Not Recovered/Not Resolved]
  - Drug ineffective [Unknown]
